FAERS Safety Report 12396064 (Version 2)
Quarter: 2016Q2

REPORT INFORMATION
  Report Type: Spontaneous
  Country: US (occurrence: US)
  Receive Date: 20160524
  Receipt Date: 20160624
  Transmission Date: 20160815
  Serious: Yes (Other)
  Sender: FDA-Public Use
  Company Number: PHEH2016US012586

PATIENT
  Age: 69 Year
  Sex: Female
  Weight: 59.4 kg

DRUGS (8)
  1. LOSARTAN. [Concomitant]
     Active Substance: LOSARTAN
     Indication: PRODUCT USED FOR UNKNOWN INDICATION
     Route: 065
  2. VITAMIN B12 [Concomitant]
     Active Substance: CYANOCOBALAMIN
     Indication: PRODUCT USED FOR UNKNOWN INDICATION
     Route: 065
  3. METFORMIN [Concomitant]
     Active Substance: METFORMIN HYDROCHLORIDE
     Indication: PRODUCT USED FOR UNKNOWN INDICATION
     Route: 065
  4. SANDOSTATIN [Suspect]
     Active Substance: OCTREOTIDE ACETATE
     Indication: PRODUCT USED FOR UNKNOWN INDICATION
     Route: 065
  5. VITAMIN D3 [Concomitant]
     Active Substance: CHOLECALCIFEROL
     Indication: PRODUCT USED FOR UNKNOWN INDICATION
     Route: 065
  6. SUTENT [Suspect]
     Active Substance: SUNITINIB MALATE
     Indication: PANCREATIC CARCINOMA
     Dosage: 37.5 MG, QD
     Route: 048
  7. ZANTAC [Concomitant]
     Active Substance: RANITIDINE HYDROCHLORIDE
     Indication: PRODUCT USED FOR UNKNOWN INDICATION
     Route: 065
  8. AFINITOR [Suspect]
     Active Substance: EVEROLIMUS
     Indication: PANCREATIC CARCINOMA
     Dosage: 10 MG, UNK
     Route: 065
     Dates: end: 20160208

REACTIONS (14)
  - Hypotension [Unknown]
  - Decreased appetite [Recovering/Resolving]
  - Blood glucose increased [Unknown]
  - Lung infection [Unknown]
  - Glomerular filtration rate decreased [Unknown]
  - Swelling face [Unknown]
  - White blood cell count increased [Unknown]
  - No therapeutic response [Unknown]
  - Interstitial lung disease [Recovering/Resolving]
  - Red blood cell count decreased [Unknown]
  - White blood cell count decreased [Recovered/Resolved]
  - Haemoglobin decreased [Unknown]
  - Dysphonia [Unknown]
  - Headache [Unknown]

NARRATIVE: CASE EVENT DATE: 20160208
